FAERS Safety Report 9693971 (Version 2)
Quarter: 2013Q4

REPORT INFORMATION
  Report Type: Spontaneous
  Country: JP (occurrence: None)
  Receive Date: 20131114
  Receipt Date: 20131127
  Transmission Date: 20140711
  Serious: Yes (Hospitalization)
  Sender: FDA-Public Use
  Company Number: 2013-003437

PATIENT
  Age: 74 Year
  Sex: Female

DRUGS (1)
  1. ACTONEL (RISEDRONATE SODIUM) TABLET, UNKMG [Suspect]
     Indication: OSTEOPOROSIS
     Dosage: UNKNOWN, ORAL
     Route: 048

REACTIONS (4)
  - Atypical femur fracture [None]
  - Bone disorder [None]
  - Pain in extremity [None]
  - Pathological fracture [None]
